FAERS Safety Report 23237297 (Version 2)
Quarter: 2023Q4

REPORT INFORMATION
  Report Type: Spontaneous
  Country: IT (occurrence: IT)
  Receive Date: 20231128
  Receipt Date: 20231211
  Transmission Date: 20240110
  Serious: Yes (Other)
  Sender: FDA-Public Use
  Company Number: IT-NOVPHSZ-PHHY2019IT002220

PATIENT
  Age: 40 Year
  Sex: Female
  Weight: 70 kg

DRUGS (28)
  1. CETRORELIX ACETATE [Suspect]
     Active Substance: CETRORELIX ACETATE
     Indication: Hypothalamo-pituitary disorder
     Dosage: 0.25 MG, UNK (FOR 8 DAYS, RECEIVED DURING IN VITRO FERTILIZATION))
     Route: 065
  2. CETRORELIX ACETATE [Suspect]
     Active Substance: CETRORELIX ACETATE
     Indication: Hormone therapy
     Dosage: UNK
     Route: 065
  3. CHORIOGONADOTROPIN ALFA [Suspect]
     Active Substance: CHORIOGONADOTROPIN ALFA
     Indication: Generalised tonic-clonic seizure
     Dosage: UNK
     Route: 065
  4. CORIFOLLITROPIN ALFA [Suspect]
     Active Substance: CORIFOLLITROPIN ALFA
     Indication: Hormone therapy
     Dosage: UNK
     Route: 065
  5. ENANTONE LP [Suspect]
     Active Substance: LEUPROLIDE ACETATE
     Indication: In vitro fertilisation
     Dosage: UNK
     Route: 065
  6. ETHINYL ESTRADIOL [Suspect]
     Active Substance: ETHINYL ESTRADIOL
     Indication: Product used for unknown indication
     Dosage: TID (1000 THRICE DAILY) (1 D)
     Route: 048
  7. FOLLITROPIN ALFA [Suspect]
     Active Substance: FOLLITROPIN ALFA
     Indication: Controlled ovarian stimulation
     Dosage: 300 INTERNATIONAL UNIT, QD
     Route: 065
  8. FOLLITROPIN BETA [Suspect]
     Active Substance: FOLLITROPIN BETA
     Indication: Hormone therapy
     Dosage: 300 INTERNATIONAL UNIT (SCHEDULED ADMINISTERED FOR 8 DAYS RECEIVED DURING IN VITRO FERTILIZATION)
     Route: 065
  9. FOLLITROPIN BETA [Suspect]
     Active Substance: FOLLITROPIN BETA
     Indication: In vitro fertilisation
     Dosage: UNK
     Route: 065
  10. GESTODENE [Suspect]
     Active Substance: GESTODENE
     Indication: In vitro fertilisation
     Dosage: 0.03 MG, UNK (SCHEDULED TO BE ADMINISTERED FOR 28 DAYS; RECEIVED DURING IN VITRO FERTILIZATION)
     Route: 065
  11. GESTODENE [Suspect]
     Active Substance: GESTODENE
     Indication: Hormone therapy
  12. KEPPRA [Suspect]
     Active Substance: LEVETIRACETAM
     Dosage: 0.075 MG, (SCHEDULED TO BE ADMINISTERED FOR 28 DAYS; RECEIVED DURING IN VITRO FERTILIZATION)
     Route: 065
  13. KEPPRA [Suspect]
     Active Substance: LEVETIRACETAM
     Dosage: 0.25 MILLIGRAM, UNK (FOR 8 DAYS, RECIEVED DURING IN VITRO FERTILIZATION)
     Route: 065
  14. KEPPRA [Suspect]
     Active Substance: LEVETIRACETAM
     Indication: Epilepsy
     Dosage: 1000 MG, TID
     Route: 048
     Dates: start: 20110418
  15. KEPPRA [Suspect]
     Active Substance: LEVETIRACETAM
     Dosage: 1000 MG, TID (3 IN 1 D)
     Route: 048
  16. LEVETIRACETAM [Suspect]
     Active Substance: LEVETIRACETAM
     Indication: Generalised tonic-clonic seizure
     Dosage: UNK
     Route: 048
  17. LEVETIRACETAM [Suspect]
     Active Substance: LEVETIRACETAM
     Dosage: UNK
     Route: 048
  18. LEVETIRACETAM [Suspect]
     Active Substance: LEVETIRACETAM
     Dosage: UNK, TID (1000 THRICE DAILY)
     Route: 048
  19. MENOTROPINS [Suspect]
     Active Substance: MENOTROPINS
     Indication: Controlled ovarian stimulation
     Dosage: UNK
     Route: 065
  20. FOLLITROPIN BETA [Suspect]
     Active Substance: FOLLITROPIN BETA
     Indication: In vitro fertilisation
     Dosage: 300 IU, UNK ( (SCHEDULED TO BE ADMINISTERED FOR 8 DAYS; RECEIVED DURING IN VITRO FERTILIZATION FRO)
     Route: 030
     Dates: start: 20120517, end: 20120524
  21. FOLLITROPIN BETA [Suspect]
     Active Substance: FOLLITROPIN BETA
     Indication: Hypothalamo-pituitary disorder
     Dosage: UNK
     Route: 065
  22. FOLLITROPIN BETA [Suspect]
     Active Substance: FOLLITROPIN BETA
     Indication: Hormone therapy
  23. CLOBAZAM [Concomitant]
     Active Substance: CLOBAZAM
     Indication: Epilepsy
     Dosage: 10 MG, BID
     Route: 065
  24. CLOBAZAM [Concomitant]
     Active Substance: CLOBAZAM
     Dosage: 10 MG, BID (10 MG,2 MILLIGRAM, UNKNOWN) IN 1 D)
     Route: 065
  25. ESTRADIOL [Interacting]
     Active Substance: ESTRADIOL
     Indication: Controlled ovarian stimulation
     Dosage: 4 MILLIGRAM, (4 MG, FOR 10 DAYS)
     Route: 065
  26. ESTRADIOL [Interacting]
     Active Substance: ESTRADIOL
     Dosage: UNK
     Route: 065
  27. LAMOTRIGINE [Interacting]
     Active Substance: LAMOTRIGINE
     Indication: Product used for unknown indication
     Dosage: 350 MG, QD
     Route: 065
  28. LAMOTRIGINE [Interacting]
     Active Substance: LAMOTRIGINE
     Dosage: 450 MG, QD
     Route: 065

REACTIONS (7)
  - Generalised tonic-clonic seizure [Recovered/Resolved]
  - Condition aggravated [Recovered/Resolved]
  - Drug ineffective [Recovered/Resolved]
  - Drug level decreased [Unknown]
  - Drug interaction [Unknown]
  - Generalised tonic-clonic seizure [Recovered/Resolved]
  - Blood oestrogen increased [Unknown]

NARRATIVE: CASE EVENT DATE: 20120521
